FAERS Safety Report 6146621-X (Version None)
Quarter: 2009Q2

REPORT INFORMATION
  Report Type: 
  Country: None (occurrence: None)
  Receive Date: 20090407
  Receipt Date: 20090325
  Transmission Date: 20091009
  Serious: Yes (Hospitalization)
  Sender: FDA-Public Use
  Company Number: US-PFIZER INC-2009187922

PATIENT
  Sex: Female

DRUGS (13)
  1. LYRICA [Suspect]
     Dosage: 75 MG, 1X/DAY
  2. IBUPROFEN [Suspect]
     Dosage: 800 MG
  3. DESVENLAFAXINE [Suspect]
     Indication: MENOPAUSAL SYMPTOMS
     Dosage: BLINDED THERAPY DAILY
     Route: 048
     Dates: start: 20080909, end: 20081224
  4. ABILIFY [Suspect]
     Dosage: 15 MG
  5. AMBIEN [Suspect]
     Dosage: 10 MG, 1X/DAY
     Route: 048
  6. CLONAZEPAM [Suspect]
     Dosage: 1 MG
  7. FLUTICASONE [Suspect]
     Dosage: 2 SPRAYS DAILY
  8. LEXAPRO [Suspect]
     Dosage: 20 MG, 1X/DAY
  9. LORATADINE [Suspect]
     Dosage: 10 MG, 1X/DAY
  10. METHOCARBAMOL [Suspect]
     Dosage: 750 MG
  11. VICODIN [Suspect]
     Dosage: 5/500
  12. VIVELLE [Suspect]
     Dosage: 0.1 MG
     Route: 062
  13. ZESTORETIC [Suspect]
     Dosage: 20/12.5 DAILY

REACTIONS (4)
  - CONFUSIONAL STATE [None]
  - DYSARTHRIA [None]
  - HYPERTENSION [None]
  - HYPOKALAEMIA [None]
